FAERS Safety Report 18177923 (Version 1)
Quarter: 2020Q3

REPORT INFORMATION
  Report Type: Spontaneous
  Country: US (occurrence: US)
  Receive Date: 20200820
  Receipt Date: 20200820
  Transmission Date: 20201103
  Serious: Yes (Other)
  Sender: FDA-Public Use
  Company Number: US-JAZZ-JPI-P-029047

PATIENT
  Age: 51 Year
  Sex: Female
  Weight: 68.18 kg

DRUGS (2)
  1. XYREM [Suspect]
     Active Substance: SODIUM OXYBATE
     Indication: SOMNOLENCE
  2. XYREM [Suspect]
     Active Substance: SODIUM OXYBATE
     Indication: NARCOLEPSY
     Route: 048
     Dates: start: 20121226

REACTIONS (2)
  - Headache [Recovered/Resolved]
  - Hypertension [Unknown]

NARRATIVE: CASE EVENT DATE: 20130104
